FAERS Safety Report 5019437-5 (Version None)
Quarter: 2006Q2

REPORT INFORMATION
  Report Type: 
  Country: None (occurrence: None)
  Receive Date: 20060530
  Receipt Date: 20060518
  Transmission Date: 20061013
  Serious: Yes (Other)
  Sender: FDA-Public Use
  Company Number: 200612120BCC

PATIENT
  Age: 23 Month
  Sex: Male

DRUGS (1)
  1. RID SHAMPOO [Suspect]
     Dosage: TOPICAL
     Route: 061
     Dates: start: 20060518

REACTIONS (3)
  - EYE IRRITATION [None]
  - EYE SWELLING [None]
  - OCULAR HYPERAEMIA [None]
